FAERS Safety Report 18763978 (Version 1)
Quarter: 2021Q1

REPORT INFORMATION
  Report Type: Spontaneous
  Country: FR (occurrence: FR)
  Receive Date: 20210120
  Receipt Date: 20210120
  Transmission Date: 20210419
  Serious: Yes (Other)
  Sender: FDA-Public Use
  Company Number: FR-UCBSA-2021002220

PATIENT
  Age: 0 Year
  Sex: Male
  Weight: 2.65 kg

DRUGS (4)
  1. URBANYL [Suspect]
     Active Substance: CLOBAZAM
     Dosage: 5MG (FREQUENCY UNKNOWN)
     Route: 064
     Dates: start: 2015, end: 2015
  2. VIMPAT [Suspect]
     Active Substance: LACOSAMIDE
     Indication: EPILEPSY
     Dosage: 300 MG (FREQUENCY UNKNOWN)
     Route: 064
     Dates: start: 2015, end: 20151107
  3. ZONEGRAN [Suspect]
     Active Substance: ZONISAMIDE
     Indication: EPILEPSY
     Dosage: 300 MG (FREQUENCY UNKNOWN)
     Route: 064
     Dates: start: 2015, end: 20151107
  4. URBANYL [Suspect]
     Active Substance: CLOBAZAM
     Indication: EPILEPSY
     Dosage: 10 MG (FREQUENCY UNKNOWN)
     Route: 064
     Dates: start: 2015, end: 20151107

REACTIONS (4)
  - Somnolence [Unknown]
  - Bronchiolitis [Recovered/Resolved]
  - Premature baby [Recovered/Resolved]
  - Maternal exposure during pregnancy [Unknown]

NARRATIVE: CASE EVENT DATE: 2015
